FAERS Safety Report 21711873 (Version 1)
Quarter: 2022Q4

REPORT INFORMATION
  Report Type: Spontaneous
  Country: US (occurrence: None)
  Receive Date: 20221208
  Receipt Date: 20221208
  Transmission Date: 20230112
  Serious: Yes (Hospitalization)
  Sender: FDA-Public Use
  Company Number: None

PATIENT
  Sex: Female

DRUGS (2)
  1. HYQVIA [Suspect]
     Active Substance: HUMAN IMMUNOGLOBULIN G\HYALURONIDASE RECOMBINANT HUMAN
     Indication: Hypogammaglobulinaemia
     Dosage: OTHER STRENGTH : 20/200 G/ML;?FREQUENCY : MONTHLY;?
     Route: 058
     Dates: start: 202208
  2. HYQVIA [Suspect]
     Active Substance: HUMAN IMMUNOGLOBULIN G\HYALURONIDASE RECOMBINANT HUMAN
     Indication: Hypogammaglobulinaemia
     Dosage: OTHER STRENGTH : 5/50 G/ML;?FREQUENCY : MONTHLY;?
     Route: 058
     Dates: start: 202208

REACTIONS (2)
  - Respiratory syncytial virus infection [None]
  - Weight increased [None]
